FAERS Safety Report 17368766 (Version 1)
Quarter: 2020Q1

REPORT INFORMATION
  Report Type: Spontaneous
  Country: US (occurrence: US)
  Receive Date: 20200120
  Receipt Date: 20200120
  Transmission Date: 20200409
  Serious: Yes (Hospitalization)
  Sender: FDA-Public Use
  Company Number: None

PATIENT
  Age: 39 Year
  Sex: Female

DRUGS (1)
  1. BENLYSTA [Suspect]
     Active Substance: BELIMUMAB
     Indication: SYSTEMIC LUPUS ERYTHEMATOSUS
     Dosage: ?          OTHER DOSE:1 PEN;?
     Route: 058
     Dates: start: 20191004

REACTIONS (4)
  - Contusion [None]
  - Arthritis [None]
  - Thrombosis [None]
  - Inflammation [None]

NARRATIVE: CASE EVENT DATE: 20200114
